FAERS Safety Report 12530225 (Version 1)
Quarter: 2016Q3

REPORT INFORMATION
  Report Type: Spontaneous
  Country: US (occurrence: US)
  Receive Date: 20160706
  Receipt Date: 20160706
  Transmission Date: 20161109
  Serious: No
  Sender: FDA-Public Use
  Company Number: US-PFIZER INC-2016292322

PATIENT
  Age: 60 Year
  Sex: Female

DRUGS (12)
  1. ERYTHROMYCIN. [Suspect]
     Active Substance: ERYTHROMYCIN
  2. ATENOLOL. [Suspect]
     Active Substance: ATENOLOL
  3. OMEPRAZOLE. [Suspect]
     Active Substance: OMEPRAZOLE
  4. ETODOLAC. [Suspect]
     Active Substance: ETODOLAC
  5. CECLOR [Suspect]
     Active Substance: CEFACLOR
  6. HYDROXYCHLOROQUINE [Suspect]
     Active Substance: HYDROXYCHLOROQUINE
  7. VIOXX [Suspect]
     Active Substance: ROFECOXIB
  8. MORPHINE SULFATE. [Suspect]
     Active Substance: MORPHINE SULFATE
  9. JANUVIA [Suspect]
     Active Substance: SITAGLIPTIN PHOSPHATE
  10. METHYLPREDNISOLONE. [Suspect]
     Active Substance: METHYLPREDNISOLONE
  11. KEFLEX [Suspect]
     Active Substance: CEPHALEXIN
  12. HYDROCODONE [Suspect]
     Active Substance: HYDROCODONE

REACTIONS (1)
  - Drug hypersensitivity [Unknown]
